FAERS Safety Report 5625922-5 (Version None)
Quarter: 2008Q1

REPORT INFORMATION
  Report Type: 
  Country: None (occurrence: None)
  Receive Date: 20080212
  Receipt Date: 20080212
  Transmission Date: 20080703
  Serious: Yes (Life-Threatening, Hospitalization, Other)
  Sender: FDA-Public Use
  Company Number: None

PATIENT
  Sex: Male
  Weight: 77.1115 kg

DRUGS (2)
  1. ZETIA [Suspect]
     Indication: BLOOD CHOLESTEROL
     Dosage: 1/2 TABLET  ONCE DAILY  PO
     Route: 048
     Dates: start: 20040205, end: 20080115
  2. VYTORIN [Suspect]
     Indication: BLOOD CHOLESTEROL
     Dosage: 1/2 TABLET  ONCE DAILY  PO
     Route: 048
     Dates: start: 20040205, end: 20080115

REACTIONS (8)
  - ARTHRALGIA [None]
  - DIZZINESS [None]
  - DRUG HYPERSENSITIVITY [None]
  - DYSPHAGIA [None]
  - DYSPNOEA [None]
  - MYALGIA [None]
  - PHARYNGEAL OEDEMA [None]
  - SWOLLEN TONGUE [None]
